FAERS Safety Report 5794397-8 (Version None)
Quarter: 2008Q2

REPORT INFORMATION
  Report Type: 
  Country: None (occurrence: None)
  Receive Date: 20080625
  Receipt Date: 20080610
  Transmission Date: 20081010
  Serious: Yes (Death)
  Sender: FDA-Public Use
  Company Number: 2008AL005369

PATIENT
  Age: 93 Year
  Sex: Male
  Weight: 45.3597 kg

DRUGS (1)
  1. DIGOXIN [Suspect]
     Indication: ARRHYTHMIA
     Dosage: 0.125MG DAILY PO
     Route: 048

REACTIONS (2)
  - FEELING ABNORMAL [None]
  - ORAL INTAKE REDUCED [None]
